FAERS Safety Report 7072357-7 (Version None)
Quarter: 2010Q4

REPORT INFORMATION
  Report Type: 
  Country: None (occurrence: None)
  Receive Date: 20101029
  Receipt Date: 20100118
  Transmission Date: 20110411
  Serious: No
  Sender: FDA-Public Use
  Company Number: A0839937A

PATIENT
  Age: 61 Year
  Sex: Male

DRUGS (16)
  1. ADVAIR DISKUS 100/50 [Suspect]
     Indication: CHRONIC OBSTRUCTIVE PULMONARY DISEASE
     Dosage: 1PUFF TWICE PER DAY
     Route: 055
     Dates: start: 20100107
  2. BACLOFEN [Concomitant]
  3. OXYMORPHONE [Concomitant]
  4. OXYCODONE [Concomitant]
  5. VENTOLIN HFA [Concomitant]
  6. PROZAC [Concomitant]
  7. SEROQUEL [Concomitant]
  8. AMBIEN [Concomitant]
  9. MUCINEX [Concomitant]
  10. BENADRYL [Concomitant]
  11. SALINE SPRAY [Concomitant]
     Route: 045
  12. MULTI-VITAMIN [Concomitant]
  13. LOVAZA [Concomitant]
  14. DIAZEPAM [Concomitant]
  15. RANITIDINE [Concomitant]
  16. VITAMIN B-12 [Concomitant]

REACTIONS (6)
  - DYSPNOEA [None]
  - HEADACHE [None]
  - ILL-DEFINED DISORDER [None]
  - MALAISE [None]
  - OROPHARYNGEAL PAIN [None]
  - PAIN [None]
